FAERS Safety Report 8394251-1 (Version None)
Quarter: 2012Q2

REPORT INFORMATION
  Report Type: 
  Country: None (occurrence: None)
  Receive Date: 20120530
  Receipt Date: 20120522
  Transmission Date: 20120825
  Serious: Yes (Other)
  Sender: FDA-Public Use
  Company Number: US-BAYER-2011-123560

PATIENT
  Age: 38 Year
  Sex: Female
  Weight: 74.83 kg

DRUGS (5)
  1. ACETAMINOPHEN W/ CODEINE [Concomitant]
  2. NAPROXEN (ALEVE) [Concomitant]
     Indication: MYALGIA
     Dosage: QD
     Dates: start: 20091201
  3. YAZ [Suspect]
     Indication: PREMENSTRUAL SYNDROME
     Dosage: UNK
     Dates: start: 20071031, end: 20091201
  4. CITALOPRAM [Concomitant]
  5. MULTI-VITAMIN [Concomitant]

REACTIONS (6)
  - INJURY [None]
  - GENERAL PHYSICAL HEALTH DETERIORATION [None]
  - CEREBROVASCULAR ACCIDENT [None]
  - PAIN [None]
  - EMOTIONAL DISTRESS [None]
  - ANXIETY [None]
